FAERS Safety Report 7992183-1 (Version None)
Quarter: 2011Q4

REPORT INFORMATION
  Report Type: 
  Country: None (occurrence: None)
  Receive Date: 20111219
  Receipt Date: 20110208
  Transmission Date: 20120403
  Serious: No
  Sender: FDA-Public Use
  Company Number: US-ASTRAZENECA-2011SE08074

PATIENT
  Sex: Male
  Weight: 81.6 kg

DRUGS (3)
  1. HYDROCHLORITHIAZIDES [Concomitant]
     Indication: HYPERTENSION
  2. CRESTOR [Suspect]
     Indication: HYPERCHOLESTEROLAEMIA
     Route: 048
     Dates: start: 20100101
  3. CRESTOR [Suspect]
     Dosage: 20 MG CUTTING IT INTO HALF
     Route: 048

REACTIONS (7)
  - FATIGUE [None]
  - SINUS HEADACHE [None]
  - WRONG DRUG ADMINISTERED [None]
  - WRONG TECHNIQUE IN DRUG USAGE PROCESS [None]
  - DIZZINESS [None]
  - DRUG DOSE OMISSION [None]
  - SOMNOLENCE [None]
